FAERS Safety Report 8796357 (Version 3)
Quarter: 2012Q4

REPORT INFORMATION
  Report Type: 
  Country: US (occurrence: US)
  Receive Date: 20120919
  Receipt Date: 20121005
  Transmission Date: 20130627
  Serious: Yes (Other)
  Sender: FDA-Public Use
  Company Number: US-PFIZER INC-2012228234

PATIENT
  Age: 60 Year
  Sex: Female
  Weight: 58 kg

DRUGS (15)
  1. PREMARIN [Suspect]
     Indication: HORMONE REPLACEMENT THERAPY
     Dosage: UNK, daily
  2. PROTONIX [Suspect]
     Indication: GASTRIC DISORDER
     Dosage: 40 mg, 1x/day
     Route: 065
  3. PROTONIX [Suspect]
     Indication: GASTROOESOPHAGEAL REFLUX DISEASE
  4. ZITHROMAX [Suspect]
     Indication: SINUSITIS
     Dosage: 500 mg, 1x/day
  5. ZITHROMAX [Suspect]
     Dosage: 250 mg, 1x/day
     Dates: end: 2012
  6. LORAZEPAM [Concomitant]
     Indication: NERVOUSNESS
     Dosage: 2 mg, 2x/day
  7. LORAZEPAM [Concomitant]
     Indication: DEPRESSION
  8. TRAMADOL [Concomitant]
     Indication: PAIN
     Dosage: 50 mg, 2x/day
  9. AMBIEN [Concomitant]
     Indication: NERVOUSNESS
     Dosage: 10 mg, at bed time daily
  10. AMBIEN [Concomitant]
     Indication: DEPRESSION
  11. ZYRTEC [Concomitant]
     Indication: ALLERGY PROPHYLAXIS
     Dosage: UNK
  12. HYDROCHLOROTHIAZIDE/TRIAMTERENE [Concomitant]
     Indication: DIURETIC THERAPY
     Dosage: 37.5/25 mg
  13. HYDROCHLOROTHIAZIDE/TRIAMTERENE [Concomitant]
     Indication: HYPERTENSION
  14. AMITRIPTYLINE [Concomitant]
     Indication: DEPRESSION
     Dosage: 50 mg at bed time daily and sometimes at 25 mg daily
  15. AMITRIPTYLINE [Concomitant]
     Dosage: 25 mg (sometimes)

REACTIONS (7)
  - Sinusitis [Unknown]
  - Drug ineffective [Unknown]
  - Diarrhoea [Recovering/Resolving]
  - Back pain [Recovering/Resolving]
  - Malaise [Recovering/Resolving]
  - Asthenia [Recovering/Resolving]
  - Musculoskeletal pain [Recovering/Resolving]
